FAERS Safety Report 9698631 (Version 3)
Quarter: 2013Q4

REPORT INFORMATION
  Report Type: Spontaneous
  Country: IT (occurrence: IT)
  Receive Date: 20131120
  Receipt Date: 20131204
  Transmission Date: 20140711
  Serious: Yes (Death, Other)
  Sender: FDA-Public Use
  Company Number: IT-MERCK-1310ITA003490

PATIENT
  Age: 76 Year
  Sex: Female

DRUGS (4)
  1. TEMODAL [Suspect]
     Indication: GLIOBLASTOMA
     Dosage: 20 MG, DAILY
     Route: 048
     Dates: start: 20130805, end: 20130826
  2. TEMOZOLOMIDE [Suspect]
     Indication: GLIOBLASTOMA
     Dosage: 100 MG, DAILY
     Route: 048
     Dates: start: 20130805, end: 20130908
  3. TEMOZOLOMIDE [Suspect]
     Indication: GLIOBLASTOMA
     Dosage: 20 MG, DAILY
     Route: 048
     Dates: start: 20130826, end: 20130908
  4. DELTACORTENE [Concomitant]
     Dosage: UNK
     Route: 048
     Dates: start: 20130620, end: 20130923

REACTIONS (1)
  - Bone marrow failure [Fatal]
